FAERS Safety Report 18151687 (Version 1)
Quarter: 2020Q3

REPORT INFORMATION
  Report Type: Spontaneous
  Country: US (occurrence: US)
  Receive Date: 20200814
  Receipt Date: 20200814
  Transmission Date: 20201103
  Serious: Yes (Other)
  Sender: FDA-Public Use
  Company Number: US-PFIZER INC-2020313186

PATIENT
  Age: 63 Year
  Sex: Female
  Weight: 79.37 kg

DRUGS (2)
  1. PREMARIN [Suspect]
     Active Substance: ESTROGENS, CONJUGATED
     Indication: MENOPAUSAL SYMPTOMS
     Dosage: 0.625 MG
     Route: 048
  2. PREMARIN [Suspect]
     Active Substance: ESTROGENS, CONJUGATED
     Dosage: 0.9 MG (1 WHITE OVAL TABLET, STRENGTH: 0.9MG), 1X/DAY
     Route: 048

REACTIONS (5)
  - Cataract [Unknown]
  - Feeling abnormal [Unknown]
  - Irritability [Unknown]
  - Anxiety [Unknown]
  - Cognitive disorder [Unknown]
